FAERS Safety Report 15977972 (Version 1)
Quarter: 2019Q1

REPORT INFORMATION
  Report Type: Spontaneous
  Country: EE (occurrence: EE)
  Receive Date: 20190218
  Receipt Date: 20190218
  Transmission Date: 20190418
  Serious: Yes (Hospitalization, Other)
  Sender: FDA-Public Use
  Company Number: EE-SUN PHARMACEUTICAL INDUSTRIES LTD-2019R1-199493

PATIENT

DRUGS (4)
  1. DIGOXIN. [Suspect]
     Active Substance: DIGOXIN
     Indication: HYDROPS FOETALIS
  2. AMIODARONE [Suspect]
     Active Substance: AMIODARONE
     Indication: SUPRAVENTRICULAR TACHYCARDIA
     Dosage: UNK
     Route: 064
  3. AMIODARONE [Suspect]
     Active Substance: AMIODARONE
     Indication: HYDROPS FOETALIS
  4. DIGOXIN. [Suspect]
     Active Substance: DIGOXIN
     Indication: SUPRAVENTRICULAR TACHYCARDIA
     Dosage: UNK
     Route: 064

REACTIONS (3)
  - Premature baby [Unknown]
  - Supraventricular tachycardia [Recovered/Resolved]
  - Foetal exposure during pregnancy [Unknown]
